FAERS Safety Report 4334706-X (Version None)
Quarter: 2004Q2

REPORT INFORMATION
  Report Type: 
  Country: None (occurrence: None)
  Receive Date: 20040407
  Receipt Date: 20040407
  Transmission Date: 20050107
  Serious: Yes (Other)
  Sender: FDA-Public Use
  Company Number: None

PATIENT
  Age: 27 Year
  Sex: Female
  Weight: 63.5036 kg

DRUGS (2)
  1. ALAVERT [Suspect]
     Indication: MULTIPLE ALLERGIES
     Dosage: 10 MG 1 PER DAY    ORAL
     Route: 048
     Dates: start: 20040404, end: 20040406
  2. CLARITIN-D [Suspect]
     Indication: MULTIPLE ALLERGIES
     Dosage: 1 PER DAY  ORAL
     Route: 048
     Dates: start: 20030401, end: 20030414

REACTIONS (4)
  - CRYING [None]
  - DEPRESSION [None]
  - DISTURBANCE IN ATTENTION [None]
  - IMPAIRED WORK ABILITY [None]
